FAERS Safety Report 17509709 (Version 1)
Quarter: 2020Q1

REPORT INFORMATION
  Report Type: Spontaneous
  Country: US (occurrence: US)
  Receive Date: 20200306
  Receipt Date: 20200306
  Transmission Date: 20200409
  Serious: Yes (Hospitalization)
  Sender: FDA-Public Use
  Company Number: None

PATIENT
  Age: 63 Year
  Sex: Male

DRUGS (1)
  1. XARELTO [Suspect]
     Active Substance: RIVAROXABAN
     Indication: ATRIAL FIBRILLATION
     Dates: end: 20190727

REACTIONS (7)
  - Haematemesis [None]
  - Anaemia [None]
  - Haemoglobin decreased [None]
  - Haematocrit decreased [None]
  - Gastrointestinal haemorrhage [None]
  - Melaena [None]
  - Squamous cell carcinoma of the hypopharynx [None]

NARRATIVE: CASE EVENT DATE: 20190728
